FAERS Safety Report 12280409 (Version 1)
Quarter: 2016Q2

REPORT INFORMATION
  Report Type: Spontaneous
  Country: US (occurrence: US)
  Receive Date: 20160419
  Receipt Date: 20160419
  Transmission Date: 20160815
  Serious: Yes (Hospitalization)
  Sender: FDA-Public Use
  Company Number: US-BEH-2016061245

PATIENT
  Age: 4 Year
  Sex: Male
  Weight: 18 kg

DRUGS (15)
  1. HIZENTRA [Suspect]
     Active Substance: HUMAN IMMUNOGLOBULIN G
     Indication: HYPOGAMMAGLOBULINAEMIA
     Route: 058
     Dates: start: 20151118
  2. ALBUTEROL. [Concomitant]
     Active Substance: ALBUTEROL
  3. CLARITIN [Concomitant]
     Active Substance: LORATADINE
  4. EPIPEN JR [Concomitant]
     Active Substance: EPINEPHRINE
  5. FLOVENT [Concomitant]
     Active Substance: FLUTICASONE PROPIONATE
  6. SINGULAIR [Concomitant]
     Active Substance: MONTELUKAST SODIUM
  7. ZYRTEC [Concomitant]
     Active Substance: CETIRIZINE HYDROCHLORIDE
  8. PREVACID [Concomitant]
     Active Substance: LANSOPRAZOLE
  9. LIDOCAINE / PRILOCAINE [Concomitant]
  10. ATROVENT [Concomitant]
     Active Substance: IPRATROPIUM BROMIDE
  11. MIRALAX [Concomitant]
     Active Substance: POLYETHYLENE GLYCOL 3350
  12. ZITHROMAX [Concomitant]
     Active Substance: AZITHROMYCIN DIHYDRATE
  13. DIPHENHYDRAMINE. [Concomitant]
     Active Substance: DIPHENHYDRAMINE
  14. LIDOCAINE. [Concomitant]
     Active Substance: LIDOCAINE
  15. SODIUM CHLORIDE. [Concomitant]
     Active Substance: SODIUM CHLORIDE

REACTIONS (3)
  - Pneumonia [Unknown]
  - Respiratory syncytial virus infection [Unknown]
  - Drug dose omission [Unknown]

NARRATIVE: CASE EVENT DATE: 201603
